FAERS Safety Report 4851697-3 (Version None)
Quarter: 2005Q4

REPORT INFORMATION
  Report Type: 
  Country: None (occurrence: None)
  Receive Date: 20051209
  Receipt Date: 20050919
  Transmission Date: 20060501
  Serious: Yes (Hospitalization, Other)
  Sender: FDA-Public Use
  Company Number: CAR_0040_2005

PATIENT
  Age: 16 Year
  Sex: Female

DRUGS (2)
  1. DICLOFENAC [Suspect]
     Indication: PAIN MANAGEMENT
     Dosage: 75 MG BID PO
     Route: 048
  2. CLINDAMYCIN [Concomitant]

REACTIONS (8)
  - ABDOMINAL PAIN [None]
  - ANAEMIA [None]
  - ASCITES [None]
  - LARGE INTESTINE PERFORATION [None]
  - LEUKOCYTOSIS [None]
  - PERITONITIS [None]
  - PROTHROMBIN TIME PROLONGED [None]
  - PYREXIA [None]
